FAERS Safety Report 12769910 (Version 1)
Quarter: 2016Q3

REPORT INFORMATION
  Report Type: Spontaneous
  Country: GB (occurrence: GB)
  Receive Date: 20160922
  Receipt Date: 20160922
  Transmission Date: 20161109
  Serious: Yes (Hospitalization)
  Sender: FDA-Public Use
  Company Number: GB-TEVA-693278ACC

PATIENT
  Age: 92 Year
  Sex: Female

DRUGS (7)
  1. VITAMIN B COMPLEX STRONG [Concomitant]
  2. BISOPROLOL [Suspect]
     Active Substance: BISOPROLOL
     Route: 048
  3. FOLIC ACID. [Concomitant]
     Active Substance: FOLIC ACID
  4. LANSOPRAZOLE. [Concomitant]
     Active Substance: LANSOPRAZOLE
  5. BUMETANIDE. [Suspect]
     Active Substance: BUMETANIDE
     Route: 048
  6. ADCAL-D3 [Concomitant]
     Active Substance: CALCIUM CARBONATE\CHOLECALCIFEROL
  7. PARACETAMOL [Concomitant]
     Active Substance: ACETAMINOPHEN

REACTIONS (2)
  - Circulatory collapse [Recovering/Resolving]
  - Acute kidney injury [Recovering/Resolving]
